FAERS Safety Report 10538867 (Version 2)
Quarter: 2014Q4

REPORT INFORMATION
  Report Type: Spontaneous
  Country: HU (occurrence: HU)
  Receive Date: 20141023
  Receipt Date: 20141023
  Transmission Date: 20150529
  Serious: Yes (Other)
  Sender: FDA-Public Use
  Company Number: HU-PFIZER INC-2013166460

PATIENT
  Age: 72 Year
  Sex: Male

DRUGS (5)
  1. SUTENT [Suspect]
     Active Substance: SUNITINIB MALATE
     Indication: RENAL CANCER METASTATIC
     Dosage: 50 MG, CYCLIC 1X/DAY (1ST CYCLE)
     Route: 048
     Dates: start: 20101005
  2. SUTENT [Suspect]
     Active Substance: SUNITINIB MALATE
     Dosage: 37.5 MG, CYCLIC 1X/DAY (12TH CYCLE)
     Route: 048
     Dates: start: 20140116, end: 20140213
  3. SUTENT [Suspect]
     Active Substance: SUNITINIB MALATE
     Dosage: 37.5 MG, DAILY 17TH CYCLE
     Route: 048
     Dates: end: 2014
  4. SUTENT [Suspect]
     Active Substance: SUNITINIB MALATE
     Dosage: 37.5 MG, CYCLIC 1X/DAY (13TH CYCLE)
     Route: 048
     Dates: start: 20140227
  5. SUTENT [Suspect]
     Active Substance: SUNITINIB MALATE
     Dosage: 37.5 MG, DAILY 15TH CYCLE
     Route: 048
     Dates: start: 20140521

REACTIONS (14)
  - Asthenia [Not Recovered/Not Resolved]
  - Blood thyroid stimulating hormone increased [Not Recovered/Not Resolved]
  - Nocturia [Unknown]
  - Renal cancer metastatic [Unknown]
  - Diarrhoea [Unknown]
  - Malaise [Unknown]
  - Disease progression [Unknown]
  - Fatigue [Not Recovered/Not Resolved]
  - Ascites [Unknown]
  - Abdominal pain [Unknown]
  - Depression [Unknown]
  - Dry skin [Unknown]
  - Dry mouth [Unknown]
  - Dizziness [Unknown]

NARRATIVE: CASE EVENT DATE: 20140220
